FAERS Safety Report 23565474 (Version 2)
Quarter: 2024Q2

REPORT INFORMATION
  Report Type: Spontaneous
  Country: IE (occurrence: IE)
  Receive Date: 20240226
  Receipt Date: 20240416
  Transmission Date: 20240716
  Serious: Yes (Death)
  Sender: FDA-Public Use
  Company Number: None

PATIENT
  Age: 71 Year
  Sex: Male
  Weight: 130 kg

DRUGS (22)
  1. ANAFRANIL [Suspect]
     Active Substance: CLOMIPRAMINE HYDROCHLORIDE
     Indication: Product used for unknown indication
     Route: 065
  2. ASPIRIN [Concomitant]
     Active Substance: ASPIRIN
     Indication: Product used for unknown indication
     Dosage: 75.000MG
     Route: 048
  3. AUGMENTIN [Concomitant]
     Active Substance: AMOXICILLIN\CLAVULANATE POTASSIUM
     Indication: Respiratory tract infection
     Dosage: 625.000MG TID
     Route: 048
     Dates: start: 20211122
  4. AUGMENTIN [Concomitant]
     Active Substance: AMOXICILLIN\CLAVULANATE POTASSIUM
     Indication: Urinary tract infection
  5. BISOPROLOL FUMARATE [Concomitant]
     Active Substance: BISOPROLOL FUMARATE
     Indication: Product used for unknown indication
     Dosage: 2.500MG
     Route: 048
  6. Cystrin [Concomitant]
     Indication: Product used for unknown indication
     Dosage: 10.000MG BID
     Route: 048
     Dates: start: 20211111
  7. DALMANE [Concomitant]
     Active Substance: FLURAZEPAM HYDROCHLORIDE
     Indication: Urinary tract infection
     Dosage: 15.000MG
     Route: 048
  8. EPILIM [Concomitant]
     Active Substance: VALPROATE SODIUM
     Indication: Product used for unknown indication
     Dosage: 300.000MG
     Route: 065
  9. EPILIM [Concomitant]
     Active Substance: VALPROATE SODIUM
     Dosage: 500.000MG
     Route: 048
  10. FOLIC ACID [Concomitant]
     Active Substance: FOLIC ACID
     Indication: Product used for unknown indication
     Dosage: 5.000MG
     Route: 048
  11. EZETIMIBE\SIMVASTATIN [Concomitant]
     Active Substance: EZETIMIBE\SIMVASTATIN
     Dosage: 10.000MG
     Route: 065
  12. EZETIMIBE\SIMVASTATIN [Concomitant]
     Active Substance: EZETIMIBE\SIMVASTATIN
     Indication: Product used for unknown indication
     Dosage: 40 MG + 10 MG TABLETS AT NIGHT
     Route: 048
  13. JANUVIA [Concomitant]
     Active Substance: SITAGLIPTIN PHOSPHATE
     Indication: Product used for unknown indication
     Dosage: 100.000MG
     Route: 048
  14. METHOTREXATE [Concomitant]
     Active Substance: METHOTREXATE
     Indication: Product used for unknown indication
     Dosage: 10.000MG
     Route: 048
  15. NEXIUM [Concomitant]
     Active Substance: ESOMEPRAZOLE MAGNESIUM
     Indication: Product used for unknown indication
     Dosage: 20.000MG
     Route: 048
  16. OLANZAPINE [Concomitant]
     Active Substance: OLANZAPINE
     Dosage: 12.500MG
     Route: 048
  17. OLANZAPINE [Concomitant]
     Active Substance: OLANZAPINE
     Indication: Respiratory tract infection
     Dosage: 15.000MG
     Route: 065
     Dates: start: 20211214
  18. OLANZAPINE [Concomitant]
     Active Substance: OLANZAPINE
     Dosage: 17.500MG
     Route: 065
     Dates: start: 20211216
  19. LITHIUM [Concomitant]
     Active Substance: LITHIUM
     Indication: Product used for unknown indication
     Dosage: 800.000MG
     Route: 048
  20. RIVOTRIL [Concomitant]
     Active Substance: CLONAZEPAM
     Indication: Product used for unknown indication
     Dosage: 500.000UG
     Route: 065
  21. SINEMET [Concomitant]
     Active Substance: CARBIDOPA\LEVODOPA
     Indication: Product used for unknown indication
     Dosage: 75.000MG TID
     Route: 048
  22. XYZAL [Concomitant]
     Active Substance: LEVOCETIRIZINE DIHYDROCHLORIDE
     Indication: Product used for unknown indication
     Dosage: 5.000MG QD
     Route: 048

REACTIONS (3)
  - Toxicity to various agents [Fatal]
  - Dilated cardiomyopathy [Fatal]
  - Pulmonary embolism [Fatal]

NARRATIVE: CASE EVENT DATE: 20220109
